FAERS Safety Report 9072101 (Version 5)
Quarter: 2014Q1

REPORT INFORMATION
  Report Type: Spontaneous
  Country: CA (occurrence: CA)
  Receive Date: 20130129
  Receipt Date: 20140226
  Transmission Date: 20141002
  Serious: Yes (Other)
  Sender: FDA-Public Use
  Company Number: CA-ROCHE-1184976

PATIENT
  Age: 57 Year
  Sex: Male

DRUGS (7)
  1. XOLAIR [Suspect]
     Indication: ASTHMA
     Route: 058
     Dates: start: 20120723
  2. XOLAIR [Suspect]
     Route: 058
     Dates: start: 20130124
  3. SPIRIVA [Concomitant]
  4. SYMBICORT [Concomitant]
  5. VENTOLIN [Concomitant]
  6. SINGULAIR [Concomitant]
  7. PREDNISONE [Concomitant]

REACTIONS (3)
  - Hypertension [Unknown]
  - Sinusitis [Unknown]
  - Ear infection [Unknown]
